FAERS Safety Report 14381557 (Version 2)
Quarter: 2018Q1

REPORT INFORMATION
  Report Type: Other
  Country: US (occurrence: US)
  Receive Date: 20180112
  Receipt Date: 20180117
  Transmission Date: 20180509
  Serious: Yes (Death)
  Sender: FDA-Public Use
  Company Number: US-GENUS_LIFESCIENCES-USA-POI0580201800033

PATIENT
  Age: 59 Year
  Sex: Male

DRUGS (2)
  1. DIAZEPAM. [Suspect]
     Active Substance: DIAZEPAM
     Dates: end: 2016
  2. OXYCODONE HCL CAPSULES [Suspect]
     Active Substance: OXYCODONE HYDROCHLORIDE
     Dates: end: 2016

REACTIONS (3)
  - Completed suicide [Fatal]
  - Cardiac arrest [Fatal]
  - Respiratory arrest [Fatal]

NARRATIVE: CASE EVENT DATE: 2016
